FAERS Safety Report 24444084 (Version 2)
Quarter: 2024Q4

REPORT INFORMATION
  Report Type: Report from Study
  Country: US (occurrence: US)
  Receive Date: 20241016
  Receipt Date: 20241017
  Transmission Date: 20250114
  Serious: No
  Sender: ROCHE
  Company Number: US-ROCHE-2674053

PATIENT
  Age: 61 Year
  Sex: Female
  Weight: 61.23 kg

DRUGS (7)
  1. RITUXAN [Suspect]
     Active Substance: RITUXIMAB
     Indication: Systemic scleroderma
     Route: 041
     Dates: start: 20191118
  2. RITUXAN [Suspect]
     Active Substance: RITUXIMAB
     Indication: Pulmonary fibrosis
  3. ACTEMRA [Suspect]
     Active Substance: TOCILIZUMAB
     Indication: Pulmonary fibrosis
     Route: 065
  4. MYCOPHENOLIC ACID [Concomitant]
     Active Substance: MYCOPHENOLIC ACID
     Indication: Systemic scleroderma
     Route: 048
     Dates: start: 2012
  5. MYCOPHENOLIC ACID [Concomitant]
     Active Substance: MYCOPHENOLIC ACID
     Indication: Pulmonary fibrosis
  6. NINTEDANIB [Concomitant]
     Active Substance: NINTEDANIB
     Indication: Systemic scleroderma
     Route: 048
  7. NINTEDANIB [Concomitant]
     Active Substance: NINTEDANIB
     Indication: Pulmonary fibrosis

REACTIONS (2)
  - Off label use [Unknown]
  - No adverse event [Unknown]

NARRATIVE: CASE EVENT DATE: 20191118
